FAERS Safety Report 10687364 (Version 1)
Quarter: 2014Q4

REPORT INFORMATION
  Report Type: Spontaneous
  Country: DE (occurrence: None)
  Receive Date: 20141230
  Receipt Date: 20141230
  Transmission Date: 20150529
  Serious: Yes (Other)
  Sender: FDA-Public Use
  Company Number: FK201406407

PATIENT
  Age: 45 Year
  Sex: Male

DRUGS (2)
  1. QUININE DIHYDROCHLORIDE [Suspect]
     Active Substance: QUININE HYDROCHLORIDE
     Indication: CEREBRAL MALARIA
     Route: 042
  2. CLINDAMYCIN [Suspect]
     Active Substance: CLINDAMYCIN\CLINDAMYCIN PHOSPHATE
     Indication: CEREBRAL MALARIA
     Route: 048

REACTIONS (4)
  - Respiratory failure [None]
  - Pneumothorax spontaneous [None]
  - Eosinophilic pneumonia acute [None]
  - Pulmonary bulla [None]
